FAERS Safety Report 14186266 (Version 1)
Quarter: 2017Q4

REPORT INFORMATION
  Report Type: Spontaneous
  Country: FR (occurrence: FR)
  Receive Date: 20171114
  Receipt Date: 20171114
  Transmission Date: 20180321
  Serious: Yes (Other)
  Sender: FDA-Public Use
  Company Number: FR-MERCK KGAA-2033963

PATIENT
  Age: 66 Year
  Sex: Female

DRUGS (1)
  1. NOVOTHYROX [Suspect]
     Active Substance: LEVOTHYROXINE SODIUM
     Indication: HYPOTHYROIDISM
     Route: 048
     Dates: start: 2017, end: 20171018

REACTIONS (8)
  - Phlebitis [Recovered/Resolved]
  - Abdominal pain [Recovered/Resolved]
  - Muscle spasms [Recovered/Resolved]
  - Dizziness [Recovered/Resolved]
  - Thrombosis [Recovered/Resolved]
  - Nausea [Recovered/Resolved]
  - Insomnia [Recovered/Resolved]
  - Infection [Recovered/Resolved]

NARRATIVE: CASE EVENT DATE: 20170501
